FAERS Safety Report 7992617-2 (Version None)
Quarter: 2011Q4

REPORT INFORMATION
  Report Type: 
  Country: None (occurrence: None)
  Receive Date: 20111219
  Receipt Date: 20111216
  Transmission Date: 20120403
  Serious: No
  Sender: FDA-Public Use
  Company Number: US-PFIZER INC-2011297061

PATIENT
  Sex: Female

DRUGS (5)
  1. ZYBAN [Suspect]
     Dosage: UNK
  2. HYDROMORPHONE HCL [Interacting]
     Dosage: UNK
  3. PERCOCET [Interacting]
     Dosage: UNK
  4. DIAZEPAM [Interacting]
     Dosage: UNK
  5. GABAPENTIN [Interacting]
     Dosage: UNK

REACTIONS (3)
  - DRUG HYPERSENSITIVITY [None]
  - URTICARIA [None]
  - DRUG INTERACTION [None]
